FAERS Safety Report 7351281-6 (Version None)
Quarter: 2011Q1

REPORT INFORMATION
  Report Type: 
  Country: None (occurrence: None)
  Receive Date: 20110314
  Receipt Date: 20110310
  Transmission Date: 20110831
  Serious: Yes (Hospitalization, Disabling, Other)
  Sender: FDA-Public Use
  Company Number: US-PFIZER INC-2010175709

PATIENT
  Sex: Female

DRUGS (20)
  1. SEROQUEL [Concomitant]
     Indication: DEPRESSION
     Dosage: UNK
     Dates: start: 20040101
  2. REQUIP [Concomitant]
     Indication: RESTLESS LEGS SYNDROME
     Dosage: UNK
     Dates: start: 20060101
  3. IMITREX [Concomitant]
     Indication: MIGRAINE
     Dosage: UNK
     Dates: start: 20000101
  4. BUSPAR [Concomitant]
     Indication: BIPOLAR DISORDER
  5. SEROQUEL [Concomitant]
     Indication: RESTLESS LEGS SYNDROME
  6. BUPRENORPHINE HCL AND NALOXONE HCL [Concomitant]
     Indication: PAIN
     Dosage: UNK
     Dates: start: 20070101
  7. LITHIUM [Concomitant]
     Indication: BIPOLAR DISORDER
     Dosage: UNK
     Dates: start: 19940101
  8. VICODIN [Concomitant]
     Indication: PAIN
     Dosage: UNK
     Dates: start: 19800101
  9. SEROQUEL [Concomitant]
     Indication: INSOMNIA
  10. BUPRENORPHINE HCL AND NALOXONE HCL [Concomitant]
     Indication: DETOXIFICATION
  11. BUSPAR [Concomitant]
     Indication: ANXIETY
     Dosage: UNK
     Dates: start: 19950101
  12. ALEVE [Concomitant]
     Indication: PAIN
     Dosage: UNK
     Dates: start: 20060101
  13. SEROQUEL [Concomitant]
     Indication: ANXIETY
  14. VITAMIN B-12 [Concomitant]
     Indication: ANAEMIA
     Dosage: UNK
     Dates: start: 20070101
  15. PROMETHAZINE HYDROCHLORIDE [Concomitant]
     Indication: NAUSEA
     Dosage: UNK
     Dates: start: 19990101, end: 20100101
  16. K-DUR [Concomitant]
     Indication: SUPPLEMENTATION THERAPY
     Dosage: UNK
     Dates: start: 20050101
  17. SYNTHROID [Concomitant]
     Indication: HYPOTHYROIDISM
     Dosage: UNK
     Dates: start: 20060101
  18. CHANTIX [Suspect]
     Indication: SMOKING CESSATION THERAPY
     Dosage: STARTER PAK .5 MG; CONTINUATION PAK 1 MG, UNK
     Dates: start: 20090209, end: 20090911
  19. MIRALAX [Concomitant]
     Indication: CONSTIPATION
     Dosage: UNK
     Dates: start: 20080101, end: 20100101
  20. BUSPAR [Concomitant]
     Indication: DEPRESSION

REACTIONS (9)
  - SUICIDAL IDEATION [None]
  - DEPRESSION [None]
  - ANGER [None]
  - BIPOLAR DISORDER [None]
  - SCHIZOAFFECTIVE DISORDER [None]
  - ANXIETY [None]
  - CONFUSIONAL STATE [None]
  - AGGRESSION [None]
  - HYPOMANIA [None]
